FAERS Safety Report 5485386-1 (Version None)
Quarter: 2007Q4

REPORT INFORMATION
  Report Type: 
  Country: None (occurrence: None)
  Receive Date: 20071002
  Receipt Date: 20070626
  Transmission Date: 20080405
  Serious: No
  Sender: FDA-Public Use
  Company Number: 2007034046

PATIENT
  Age: 70 Year
  Sex: Male
  Weight: 102.2861 kg

DRUGS (12)
  1. DEPO-TESTOSTERONE [Suspect]
     Indication: BLOOD TESTOSTERONE DECREASED
     Dosage: (200 MG, EVERY MONTH) INTRAMUSCULAR
     Route: 030
     Dates: start: 20070320
  2. DEPO-TESTOSTERONE [Suspect]
  3. ATENOLOL [Concomitant]
  4. ALBUTEROL [Concomitant]
  5. ANTIVERT (MECLOZINE HYDROCHLORIDE) [Concomitant]
  6. MULTIVITAMIN [Concomitant]
  7. CALCIUM (CALCIUM) [Concomitant]
  8. VITAMIN B12 [Concomitant]
  9. ALLEGRA (FEXOFENADINE HYDROCHLORIDE) [Concomitant]
  10. ASPIRIN [Concomitant]
  11. ZOCOR [Concomitant]
  12. MAGNESIUM (MAGNESIUM) [Concomitant]

REACTIONS (4)
  - INJECTION SITE NODULE [None]
  - INJECTION SITE PAIN [None]
  - INJECTION SITE SWELLING [None]
  - INJECTION SITE WARMTH [None]
